FAERS Safety Report 9363371 (Version 4)
Quarter: 2013Q4

REPORT INFORMATION
  Report Type: Spontaneous
  Country: SE (occurrence: SE)
  Receive Date: 20130624
  Receipt Date: 20131224
  Transmission Date: 20140711
  Serious: Yes (Other)
  Sender: FDA-Public Use
  Company Number: SE-JNJFOC-20130611239

PATIENT
  Age: 40 Year
  Sex: Female

DRUGS (3)
  1. EDURANT [Suspect]
     Indication: HIV INFECTION
     Route: 048
     Dates: start: 20120727
  2. KIVEXA [Concomitant]
     Dosage: 600MG/300MG
     Route: 065
     Dates: start: 20120727
  3. LAMIVUDINE [Concomitant]
     Route: 065
     Dates: start: 20120727

REACTIONS (2)
  - Abortion spontaneous [Recovered/Resolved]
  - Exposure during pregnancy [Recovered/Resolved]
